FAERS Safety Report 18992643 (Version 2)
Quarter: 2021Q2

REPORT INFORMATION
  Report Type: Report from Study
  Country: BR (occurrence: BR)
  Receive Date: 20210310
  Receipt Date: 20210510
  Transmission Date: 20210717
  Serious: Yes (Hospitalization, Other)
  Sender: FDA-Public Use
  Company Number: NVSC2021BR040273

PATIENT
  Age: 58 Year
  Sex: Female

DRUGS (4)
  1. KISQALI [Suspect]
     Active Substance: RIBOCICLIB
     Dosage: (2 PER DAY), QD
     Route: 065
     Dates: end: 20210406
  2. KISQALI [Suspect]
     Active Substance: RIBOCICLIB
     Dosage: (3 PER DAY), QD
     Route: 065
     Dates: start: 20210217
  3. KISQALI [Suspect]
     Active Substance: RIBOCICLIB
     Indication: BREAST CANCER
     Dosage: 3 DF (MORNING)
     Route: 065
     Dates: start: 20210215
  4. FASLODEX [Concomitant]
     Active Substance: FULVESTRANT
     Indication: PRODUCT USED FOR UNKNOWN INDICATION
     Dosage: 2 INJECTIONS
     Route: 065

REACTIONS (24)
  - Metastases to bone [Unknown]
  - Pain [Not Recovered/Not Resolved]
  - Discomfort [Unknown]
  - Red blood cell abnormality [Unknown]
  - Aspartate aminotransferase increased [Unknown]
  - Benign bone neoplasm [Unknown]
  - Hepatic cirrhosis [Unknown]
  - Neuropathy peripheral [Unknown]
  - C-reactive protein increased [Unknown]
  - Pulmonary mass [Unknown]
  - Haematocrit decreased [Unknown]
  - Hepatic mass [Unknown]
  - Alanine aminotransferase increased [Unknown]
  - Neutrophil count decreased [Unknown]
  - Malaise [Unknown]
  - Haemoglobin decreased [Unknown]
  - Gamma-glutamyltransferase abnormal [Unknown]
  - White blood cell count decreased [Unknown]
  - Neutropenia [Unknown]
  - Blood creatinine increased [Unknown]
  - Abdominal pain [Unknown]
  - Mean cell haemoglobin [Unknown]
  - Liver function test abnormal [Unknown]
  - Drug ineffective [Unknown]

NARRATIVE: CASE EVENT DATE: 20210215
